FAERS Safety Report 18504727 (Version 3)
Quarter: 2020Q4

REPORT INFORMATION
  Report Type: Spontaneous
  Country: US (occurrence: US)
  Receive Date: 20201115
  Receipt Date: 20201231
  Transmission Date: 20210114
  Serious: No
  Sender: FDA-Public Use
  Company Number: US-ASTRAZENECA-2020SF42417

PATIENT
  Age: 26857 Day
  Sex: Female
  Weight: 81.6 kg

DRUGS (3)
  1. NORVASC [Concomitant]
     Active Substance: AMLODIPINE BESYLATE
     Indication: BLOOD PRESSURE MEASUREMENT
     Route: 048
  2. BYDUREON BCISE [Suspect]
     Active Substance: EXENATIDE
     Indication: TYPE 2 DIABETES MELLITUS
     Route: 058
  3. HUMALOG [Concomitant]
     Active Substance: INSULIN LISPRO
     Indication: TYPE 2 DIABETES MELLITUS
     Dosage: 3 TO 5 TIMES A WEEK, BEFORE MEALS
     Route: 058

REACTIONS (5)
  - Glycosylated haemoglobin abnormal [Recovered/Resolved]
  - Device leakage [Unknown]
  - Injection site pain [Recovered/Resolved]
  - Wrong technique in device usage process [Unknown]
  - Device use issue [Unknown]

NARRATIVE: CASE EVENT DATE: 20201019
